FAERS Safety Report 15563651 (Version 1)
Quarter: 2018Q4

REPORT INFORMATION
  Report Type: Spontaneous
  Country: US (occurrence: US)
  Receive Date: 20181029
  Receipt Date: 20181029
  Transmission Date: 20190205
  Serious: No
  Sender: FDA-Public Use
  Company Number: US-SA-2018SA295976

PATIENT
  Sex: Female

DRUGS (1)
  1. SELSUN BLUE MOISTURIZING [Suspect]
     Active Substance: SELENIUM SULFIDE

REACTIONS (2)
  - Skin exfoliation [Unknown]
  - Pain of skin [Unknown]
